FAERS Safety Report 10561575 (Version 2)
Quarter: 2014Q4

REPORT INFORMATION
  Report Type: Report from Study
  Country: US (occurrence: US)
  Receive Date: 20141103
  Receipt Date: 20141126
  Transmission Date: 20150529
  Serious: Yes (Hospitalization)
  Sender: FDA-Public Use
  Company Number: US-ACTELION-A-US2014-107371

PATIENT
  Age: 61 Year
  Sex: Female

DRUGS (1)
  1. TRACLEER [Suspect]
     Active Substance: BOSENTAN\BOSENTAN MONOHYDRATE
     Indication: PULMONARY ARTERIAL HYPERTENSION
     Dosage: 125 MG, BID
     Route: 048
     Dates: start: 2004

REACTIONS (3)
  - Bronchiectasis [Unknown]
  - Pseudomonas infection [Unknown]
  - Condition aggravated [Unknown]
